FAERS Safety Report 7078054-6 (Version None)
Quarter: 2010Q4

REPORT INFORMATION
  Report Type: 
  Country: None (occurrence: None)
  Receive Date: 20101102
  Receipt Date: 20101022
  Transmission Date: 20110411
  Serious: No
  Sender: FDA-Public Use
  Company Number: US-BIOGENIDEC-2010BI028853

PATIENT
  Age: 38 Year
  Sex: Male

DRUGS (1)
  1. TYSABRI [Suspect]
     Indication: MULTIPLE SCLEROSIS
     Route: 042
     Dates: start: 20080116, end: 20100701

REACTIONS (9)
  - ARTHRITIS INFECTIVE [None]
  - BACTERIAL INFECTION [None]
  - CELLULITIS [None]
  - FALL [None]
  - FOREIGN BODY [None]
  - GENERAL SYMPTOM [None]
  - INFECTION [None]
  - JOINT INJURY [None]
  - JOINT SWELLING [None]
